FAERS Safety Report 7556735-5 (Version None)
Quarter: 2011Q2

REPORT INFORMATION
  Report Type: 
  Country: None (occurrence: None)
  Receive Date: 20110616
  Receipt Date: 20110616
  Transmission Date: 20111010
  Serious: Yes (Hospitalization)
  Sender: FDA-Public Use
  Company Number: None

PATIENT
  Age: 54 Year
  Sex: Female
  Weight: 66 kg

DRUGS (8)
  1. ATIVAN [Concomitant]
  2. ZOFRAN [Concomitant]
  3. METHOXYAMINE 30 MG/M2 [Suspect]
     Indication: PANCREATIC CARCINOMA
     Dosage: 49 MG IV
     Route: 042
     Dates: start: 20110603
  4. TEMOZOLOMIDE [Suspect]
     Indication: PANCREATIC CARCINOMA
     Dosage: 250 MG PO
     Route: 048
     Dates: start: 20110603, end: 20110607
  5. METHADONE HCL [Concomitant]
  6. SYNTHROID [Concomitant]
  7. CREON [Concomitant]
  8. OMEPRAZOLE [Concomitant]

REACTIONS (5)
  - PAIN [None]
  - ANXIETY [None]
  - CONFUSIONAL STATE [None]
  - NAUSEA [None]
  - HYPONATRAEMIA [None]
